FAERS Safety Report 24339296 (Version 2)
Quarter: 2024Q4

REPORT INFORMATION
  Report Type: Report from Study
  Country: US (occurrence: US)
  Receive Date: 20240919
  Receipt Date: 20241007
  Transmission Date: 20250114
  Serious: Yes (Death)
  Sender: ITALFARMACO
  Company Number: US-ITALFARMACO SPA-2161815

PATIENT
  Age: 60 Year
  Sex: Male

DRUGS (9)
  1. TIGLUTIK [Suspect]
     Active Substance: RILUZOLE
     Indication: Amyotrophic lateral sclerosis
     Dates: start: 20240313, end: 20240905
  2. ISOPTO ATROPINE [Concomitant]
     Active Substance: ATROPINE SULFATE
  3. TUDCABIL [Concomitant]
  4. TRANSDERM SCOP [Concomitant]
     Active Substance: SCOPOLAMINE
  5. RADICAVA [Concomitant]
     Active Substance: EDARAVONE
  6. NUEDEXTA [Concomitant]
     Active Substance: DEXTROMETHORPHAN HYDROBROMIDE\QUINIDINE SULFATE
  7. METHYLCOBALAMIN [Concomitant]
     Active Substance: METHYLCOBALAMIN
  8. GUAIFENESIN [Concomitant]
     Active Substance: GUAIFENESIN
  9. ROBINUL [Concomitant]
     Active Substance: GLYCOPYRROLATE

REACTIONS (1)
  - Pneumonia [Fatal]

NARRATIVE: CASE EVENT DATE: 20240905
